FAERS Safety Report 20171476 (Version 2)
Quarter: 2021Q4

REPORT INFORMATION
  Report Type: Spontaneous
  Country: SG (occurrence: SG)
  Receive Date: 20211210
  Receipt Date: 20211216
  Transmission Date: 20220303
  Serious: Yes (Other)
  Sender: FDA-Public Use
  Company Number: SG-UCBSA-2021057653

PATIENT
  Age: 10 Year
  Sex: Male
  Weight: 46 kg

DRUGS (6)
  1. LEVETIRACETAM [Suspect]
     Active Substance: LEVETIRACETAM
     Indication: Post-traumatic epilepsy
     Dosage: UNK
  2. ZONISAMIDE [Suspect]
     Active Substance: ZONISAMIDE
     Indication: Post-traumatic epilepsy
     Dosage: UNK
  3. OXCARBAZEPINE [Suspect]
     Active Substance: OXCARBAZEPINE
     Indication: Post-traumatic epilepsy
     Dosage: UNK
  4. CLOBAZAM [Suspect]
     Active Substance: CLOBAZAM
     Indication: Post-traumatic epilepsy
     Dosage: UNK
  5. PERAMPANEL [Concomitant]
     Active Substance: PERAMPANEL
     Indication: Post-traumatic epilepsy
     Dosage: 2 MILLIGRAM
  6. PERAMPANEL [Concomitant]
     Active Substance: PERAMPANEL
     Dosage: MAXIMUN DOSE 6 MILLIGRAM

REACTIONS (4)
  - Thrombocytopenia [Recovered/Resolved]
  - Drug resistance [Unknown]
  - Behaviour disorder [Unknown]
  - Fatigue [Unknown]
